FAERS Safety Report 9774621 (Version 1)
Quarter: 2013Q4

REPORT INFORMATION
  Report Type: Spontaneous
  Country: US (occurrence: None)
  Receive Date: 20131219
  Receipt Date: 20131219
  Transmission Date: 20140711
  Serious: Yes (Other)
  Sender: FDA-Public Use
  Company Number: None

PATIENT
  Age: 23 Year
  Sex: Male

DRUGS (6)
  1. VYVANSE 50 MG SHIRE [Suspect]
     Indication: ATTENTION DEFICIT/HYPERACTIVITY DISORDER
  2. TRUVADA [Concomitant]
  3. ISENTRESS [Concomitant]
  4. RANITIDINE [Concomitant]
  5. METOPROLOL [Concomitant]
  6. HYDROCHLOROTHIAZIDE [Concomitant]

REACTIONS (7)
  - Thirst [None]
  - Dizziness [None]
  - Pruritus [None]
  - Glossodynia [None]
  - Headache [None]
  - Blood pressure increased [None]
  - Product substitution issue [None]
